FAERS Safety Report 5321091-X (Version None)
Quarter: 2007Q2

REPORT INFORMATION
  Report Type: 
  Country: None (occurrence: None)
  Receive Date: 20070504
  Receipt Date: 20070504
  Transmission Date: 20071010
  Serious: Yes (Death, Life-Threatening, Hospitalization, Congenital Anomaly)
  Sender: FDA-Public Use
  Company Number: SU-2005-003627

PATIENT

DRUGS (5)
  1. BENICAR [Suspect]
     Indication: HYPERTENSION
     Dosage: 10 MG (40 MG, QD), PER ORAL
     Route: 048
     Dates: start: 20040601, end: 20050201
  2. DEMULEN (ETHINYLESTRADIOL, ETYNODIOL DIACETATE) (TABLET) (ETHINYLESTRA [Concomitant]
  3. ALDACTIZIDE (SPIRONOLACTONE HYDROCHLOROTHIAZIDE) (SPIRONOLACTONE, HYDR [Concomitant]
  4. GLUCOPHAGE (METFORMIN HYDROCHLORIDE) (METFORMIN HYDROCHLORIDE) [Concomitant]
  5. SYNTHROID (LEVOTHYROXINE SODIUM) (LEVOTHYROXINE SODIUM) [Concomitant]

REACTIONS (3)
  - CONGENITAL RENAL DISORDER [None]
  - DRUG EXPOSURE DURING PREGNANCY [None]
  - PREMATURE BABY [None]
